FAERS Safety Report 9689297 (Version 4)
Quarter: 2014Q1

REPORT INFORMATION
  Report Type: Not Available
  Country: FR (occurrence: FR)
  Receive Date: 20131114
  Receipt Date: 20140220
  Transmission Date: 20141002
  Serious: Yes (Hospitalization, Other)
  Sender: FDA-Public Use
  Company Number: FR-NAPPMUNDI-GBR-2013-0016269

PATIENT
  Age: 86 Year
  Sex: Male

DRUGS (16)
  1. OXYNORMORO COMPRIME ORODISPERSIBLE 5 MG [Suspect]
     Indication: MUSCULOSKELETAL CHEST PAIN
     Dosage: 5 MG, Q4H
     Route: 048
     Dates: start: 20130903, end: 20130905
  2. SKENAN [Suspect]
     Indication: MUSCULOSKELETAL CHEST PAIN
     Dosage: 10 MG 2 CAPSULES
     Route: 048
     Dates: start: 20130905, end: 20130908
  3. SKENAN [Suspect]
     Dosage: 10 MG, 1 CAPSULE
     Route: 048
     Dates: start: 20130905, end: 20130906
  4. ACTISKENAN [Suspect]
     Indication: MUSCULOSKELETAL CHEST PAIN
     Dosage: UNK UNK, PRN
     Route: 048
     Dates: start: 20130905, end: 20130909
  5. ACETYLSALICYLATE LYSINE [Concomitant]
     Dosage: 75 MG, DAILY
  6. CLOPIDOGREL [Concomitant]
     Dosage: 75 MG, DAILY
  7. PROCORALAN [Concomitant]
     Dosage: 5 MG, DAILY
  8. ESOMEPRAZOLE [Concomitant]
     Dosage: 20 MG, DAILY
  9. AMLODIPINE [Concomitant]
     Dosage: 5 MG, DAILY
  10. COVERSYL                           /00790702/ [Concomitant]
     Dosage: 2 MG, DAILY
     Dates: end: 20130913
  11. ATORVASTATINE [Concomitant]
     Dosage: 40 MG, DAILY
  12. TAMSULOSINE HCL A [Concomitant]
     Dosage: 0.4 MG, DAILY
  13. PARACETAMOL [Concomitant]
     Dosage: 4 G, DAILY
  14. TERBUTALINE [Concomitant]
     Dosage: 5 MG/2ML
  15. SYMBICORT [Concomitant]
  16. AUGMENTIN [Concomitant]

REACTIONS (5)
  - Bronchial obstruction [Recovered/Resolved]
  - Renal failure acute [Recovered/Resolved]
  - Sedation [Recovered/Resolved]
  - Dehydration [Recovered/Resolved]
  - Overdose [Recovered/Resolved]
